FAERS Safety Report 9916410 (Version 1)
Quarter: 2014Q1

REPORT INFORMATION
  Report Type: Spontaneous
  Country: US (occurrence: None)
  Receive Date: 20140220
  Receipt Date: 20140220
  Transmission Date: 20141002
  Serious: Yes (Life-Threatening, Hospitalization)
  Sender: FDA-Public Use
  Company Number: None

PATIENT
  Age: 33 Year
  Sex: Female
  Weight: 113.4 kg

DRUGS (2)
  1. YAZ BAYER [Suspect]
     Indication: CONTRACEPTION
     Route: 048
     Dates: start: 20080501, end: 20080831
  2. YAZ BAYER [Suspect]
     Indication: ACNE
     Route: 048
     Dates: start: 20080501, end: 20080831

REACTIONS (2)
  - Pancreatitis acute [None]
  - Coma [None]
